FAERS Safety Report 4591992-9 (Version None)
Quarter: 2005Q1

REPORT INFORMATION
  Report Type: 
  Country: None (occurrence: None)
  Receive Date: 20050125
  Receipt Date: 20041019
  Transmission Date: 20050727
  Serious: No
  Sender: FDA-Public Use
  Company Number: USA040874430

PATIENT
  Age: 62 Year
  Sex: Female
  Weight: 56 kg

DRUGS (10)
  1. FORTEO [Suspect]
     Indication: BONE DISORDER
     Dosage: 20 UG/1 DAY
     Dates: start: 20040524
  2. EVISTA [Suspect]
     Dates: end: 20000101
  3. AVAPRO [Concomitant]
  4. MAXZIDE [Concomitant]
  5. TENORMIN (ATENOLOL EG) [Concomitant]
  6. PAXIL [Concomitant]
  7. SYNTHROID [Concomitant]
  8. ZOCOR [Concomitant]
  9. CRESTOR [Concomitant]
  10. FLONASE [Concomitant]

REACTIONS (13)
  - ABDOMINAL PAIN UPPER [None]
  - BLOOD CALCIUM INCREASED [None]
  - BLOOD CHOLESTEROL INCREASED [None]
  - DRY SKIN [None]
  - DYSPNOEA [None]
  - EAR DISORDER [None]
  - FEELING HOT [None]
  - HOT FLUSH [None]
  - HYPERTENSION [None]
  - HYPOTHYROIDISM [None]
  - MYALGIA [None]
  - TEMPERATURE INTOLERANCE [None]
  - TINNITUS [None]
